FAERS Safety Report 6604868-X (Version None)
Quarter: 2010Q1

REPORT INFORMATION
  Report Type: 
  Country: None (occurrence: None)
  Receive Date: 20100226
  Receipt Date: 20100223
  Transmission Date: 20100710
  Serious: Yes (Hospitalization)
  Sender: FDA-Public Use
  Company Number: A0846486A

PATIENT
  Sex: Female
  Weight: 145.5 kg

DRUGS (1)
  1. AVANDIA [Suspect]
     Dosage: 4MG TWICE PER DAY
     Route: 048
     Dates: start: 20000630, end: 20030530

REACTIONS (2)
  - CARDIAC DISORDER [None]
  - THROMBOSIS [None]
